FAERS Safety Report 6543691-1 (Version None)
Quarter: 2010Q1

REPORT INFORMATION
  Report Type: 
  Country: None (occurrence: None)
  Receive Date: 20100119
  Receipt Date: 20100119
  Transmission Date: 20100710
  Serious: Yes (Other)
  Sender: FDA-Public Use
  Company Number: None

PATIENT
  Age: 37 Year
  Sex: Female
  Weight: 68.0396 kg

DRUGS (1)
  1. MOTRIN IB [Suspect]
     Indication: LYMPHADENOPATHY
     Dosage: 1-200MG. IN AM, 1-200MG PM DAILY PO
     Route: 048
     Dates: start: 20091118, end: 20100115

REACTIONS (3)
  - ABDOMINAL PAIN UPPER [None]
  - PRODUCT QUALITY ISSUE [None]
  - VOMITING [None]
